FAERS Safety Report 4366491-X (Version None)
Quarter: 2004Q2

REPORT INFORMATION
  Report Type: 
  Country: None (occurrence: None)
  Receive Date: 20040527
  Receipt Date: 20040422
  Transmission Date: 20050107
  Serious: Yes (Other)
  Sender: FDA-Public Use
  Company Number: US-BRISTOL-MYERS SQUIBB COMPANY-12568069

PATIENT
  Age: 64 Year
  Sex: Female
  Weight: 49 kg

DRUGS (7)
  1. ERBITUX [Suspect]
     Indication: OVARIAN CANCER METASTATIC
     Dosage: TOTAL OF 620 MG
     Route: 042
     Dates: start: 20040325, end: 20040325
  2. TYLENOL [Concomitant]
     Indication: PREMEDICATION
     Dates: start: 20040325, end: 20040325
  3. BENADRYL [Concomitant]
     Indication: PREMEDICATION
     Dates: start: 20040325, end: 20040325
  4. HEXADROL [Concomitant]
     Indication: PREMEDICATION
     Dates: start: 20040325, end: 20040325
  5. HERCEPTIN [Concomitant]
  6. FLEET RECTAROID ENEMA [Concomitant]
  7. COUMADIN [Concomitant]

REACTIONS (1)
  - DERMATITIS ACNEIFORM [None]
